FAERS Safety Report 8641316 (Version 2)
Quarter: 2013Q2

REPORT INFORMATION
  Report Type: Spontaneous
  Country: GB (occurrence: GB)
  Receive Date: 20120628
  Receipt Date: 20130529
  Transmission Date: 20140414
  Serious: No
  Sender: FDA-Public Use
  Company Number: GB-ROCHE-1081469

PATIENT
  Age: 26 Year
  Sex: Female

DRUGS (1)
  1. ROACCUTANE [Suspect]
     Indication: PRODUCT USED FOR UNKNOWN INDICATION
     Route: 065
     Dates: start: 201104, end: 201112

REACTIONS (2)
  - Pregnancy [Unknown]
  - No adverse event [Unknown]
